FAERS Safety Report 22172928 (Version 2)
Quarter: 2023Q2

REPORT INFORMATION
  Report Type: Spontaneous
  Country: CA (occurrence: CA)
  Receive Date: 20230404
  Receipt Date: 20230622
  Transmission Date: 20230722
  Serious: Yes (Other)
  Sender: FDA-Public Use
  Company Number: CA-Covis Pharma Europe B.V.-2023COV00719

PATIENT
  Age: 67 Year
  Sex: Female

DRUGS (4)
  1. ALVESCO [Suspect]
     Active Substance: CICLESONIDE
     Dosage: 2 DOSAGE FORMS 2 EVERY 1 DAYS
     Route: 055
  2. GLYCOPYRROLATE\INDACATEROL MALEATE [Suspect]
     Active Substance: GLYCOPYRROLATE\INDACATEROL MALEATE
     Dosage: 1 DOSAGE FORMS 1 EVERY 1 DAYS
     Route: 065
  3. NUCALA [Suspect]
     Active Substance: MEPOLIZUMAB
     Indication: Asthma
     Dosage: 100.0 MILLIGRAM
     Route: 042
  4. ALBUTEROL SULFATE [Suspect]
     Active Substance: ALBUTEROL SULFATE
     Indication: Asthma
     Dosage: 100.0 MICROGRAM
     Route: 065

REACTIONS (10)
  - Decreased activity [Recovered/Resolved]
  - Asthma [Recovered/Resolved]
  - Chest discomfort [Recovered/Resolved]
  - Dyspnoea [Recovered/Resolved]
  - Fatigue [Recovered/Resolved]
  - Full blood count abnormal [Recovered/Resolved]
  - Gait disturbance [Recovered/Resolved]
  - Insomnia [Recovered/Resolved]
  - Obstructive airways disorder [Recovered/Resolved]
  - Wheezing [Recovered/Resolved]
